FAERS Safety Report 7148387-3 (Version None)
Quarter: 2010Q4

REPORT INFORMATION
  Report Type: 
  Country: None (occurrence: None)
  Receive Date: 20101209
  Receipt Date: 20101201
  Transmission Date: 20110411
  Serious: Yes (Other)
  Sender: FDA-Public Use
  Company Number: US-ELI_LILLY_AND_COMPANY-US201012000282

PATIENT
  Sex: Female

DRUGS (2)
  1. BYETTA [Suspect]
     Indication: PRODUCT USED FOR UNKNOWN INDICATION
     Route: 058
  2. BISPHOSPHONATES [Concomitant]

REACTIONS (2)
  - GASTRIC ULCER [None]
  - IMPAIRED GASTRIC EMPTYING [None]
